FAERS Safety Report 9528616 (Version 1)
Quarter: 2013Q1

REPORT INFORMATION
  Report Type: Spontaneous
  Country: US (occurrence: None)
  Receive Date: 20130314
  Receipt Date: 20130314
  Transmission Date: 20140127
  Serious: No
  Sender: FDA-Public Use
  Company Number: 1211USA011866

PATIENT
  Age: 57 Year
  Sex: Female
  Weight: 71.1 kg

DRUGS (4)
  1. VICTRELIS (BOCEPREVIR) CAPSULE, 200 MG [Suspect]
     Indication: HEPATITIS C
     Route: 048
     Dates: start: 20121105
  2. PEGINTRON (PEGINTERFERON ALFA-2B) POWDER FOR INJECTION [Suspect]
     Indication: HEPATITIS C
     Dosage: REDIPEN: 120MCG/0.5ML, SUBCUTANEOUS
  3. RIBASPHERE(RIBAVIRIN)CAPSULE [Suspect]
     Indication: HEPATITIS C
     Dosage: 2 CAPSULES QAM,
  4. AMLODIPINE BESYLATE (AMLODIPINE BESYLATE) [Concomitant]

REACTIONS (4)
  - Lethargy [None]
  - Abasia [None]
  - Fatigue [None]
  - Asthenia [None]
